FAERS Safety Report 9264491 (Version 1)
Quarter: 2013Q2

REPORT INFORMATION
  Report Type: Spontaneous
  Country: CN (occurrence: CN)
  Receive Date: 20130501
  Receipt Date: 20130501
  Transmission Date: 20140414
  Serious: Yes (Other)
  Sender: FDA-Public Use
  Company Number: PHHY2013CN040874

PATIENT
  Age: 56 Year
  Sex: Male

DRUGS (5)
  1. RIBAVIRIN [Suspect]
     Indication: HEPATITIS C
     Dosage: 800 MG PER DAY
  2. PEGYLATED INTERFERON ALFA-2A [Suspect]
     Indication: HEPATITIS C
     Dosage: 135 G PER WEEK
  3. TACROLIMUS [Concomitant]
     Indication: IMMUNOSUPPRESSION
  4. PREDNISONE [Concomitant]
     Dosage: 30 MG PER DAY
  5. AZATHIOPRINE [Concomitant]
     Dosage: 100 MG PER DAY

REACTIONS (4)
  - Autoimmune hepatitis [Unknown]
  - Alanine aminotransferase increased [Unknown]
  - Aspartate aminotransferase increased [Unknown]
  - Blood immunoglobulin G increased [Unknown]
